FAERS Safety Report 10056588 (Version 1)
Quarter: 2014Q2

REPORT INFORMATION
  Report Type: Spontaneous
  Country: US (occurrence: US)
  Receive Date: 20140403
  Receipt Date: 20140403
  Transmission Date: 20141212
  Serious: No
  Sender: FDA-Public Use
  Company Number: US-PFIZER INC-2014090451

PATIENT
  Age: 42 Year
  Sex: Male
  Weight: 73.47 kg

DRUGS (1)
  1. SILDENAFIL CITRATE [Suspect]
     Indication: ERECTILE DYSFUNCTION
     Dosage: 50 MG, UNK
     Dates: start: 201402, end: 20140327

REACTIONS (3)
  - Drug ineffective [Unknown]
  - Suspected counterfeit product [Unknown]
  - Product quality issue [Unknown]
